FAERS Safety Report 9775394 (Version 3)
Quarter: 2014Q2

REPORT INFORMATION
  Report Type: Spontaneous
  Country: GB (occurrence: GB)
  Receive Date: 20131220
  Receipt Date: 20140411
  Transmission Date: 20141212
  Serious: Yes (Other)
  Sender: FDA-Public Use
  Company Number: GB-INCYTE CORPORATION-2013IN002260

PATIENT
  Age: 62 Year
  Sex: Female

DRUGS (5)
  1. JAKAVI [Suspect]
     Indication: MYELOFIBROSIS
     Dosage: 10 MG, BID
     Route: 048
     Dates: start: 20130821
  2. JAKAVI [Suspect]
     Dosage: 5 MG, BID
     Route: 048
  3. JAKAVI [Suspect]
     Dosage: 10 MG, BID
     Route: 048
  4. FENTANYL PCH [Concomitant]
     Dosage: UNK
  5. OXYNORM [Concomitant]
     Dosage: UNK

REACTIONS (2)
  - Fatigue [Recovered/Resolved]
  - Dizziness [Recovered/Resolved]
